FAERS Safety Report 15843204 (Version 3)
Quarter: 2019Q1

REPORT INFORMATION
  Report Type: Spontaneous
  Country: US (occurrence: US)
  Receive Date: 20190118
  Receipt Date: 20190301
  Transmission Date: 20190417
  Serious: Yes (Hospitalization, Other)
  Sender: FDA-Public Use
  Company Number: US-PFIZER INC-2019021812

PATIENT
  Age: 76 Year
  Sex: Female
  Weight: 55 kg

DRUGS (1)
  1. ESTRING [Suspect]
     Active Substance: ESTRADIOL
     Indication: VULVOVAGINAL DRYNESS
     Dosage: 2 MG, EVERY 3 MONTHS
     Dates: start: 2004

REACTIONS (6)
  - Cognitive disorder [Unknown]
  - Contraindicated product administered [Unknown]
  - Pancreatic carcinoma [Recovered/Resolved]
  - Lung cancer metastatic [Recovered/Resolved]
  - Sepsis [Unknown]
  - Weight increased [Unknown]
